FAERS Safety Report 8964932 (Version 1)
Quarter: 2012Q4

REPORT INFORMATION
  Report Type: 
  Country: IT (occurrence: IT)
  Receive Date: 20121214
  Receipt Date: 20121214
  Transmission Date: 20130627
  Serious: Yes (Hospitalization)
  Sender: FDA-Public Use
  Company Number: IT-TEVA-374131ISR

PATIENT
  Age: 53 Year
  Sex: Male

DRUGS (5)
  1. METOTRESSATO TEVA [Suspect]
     Indication: NON-HODGKIN^S LYMPHOMA
     Dosage: 2820 Milligram Daily;
     Route: 042
     Dates: start: 20120124, end: 20120124
  2. ARACYTIN [Concomitant]
     Indication: NON-HODGKIN^S LYMPHOMA
     Dosage: 7520 Milligram Daily; cytarabine 500mg/10ml
     Route: 042
     Dates: start: 20120128, end: 20120128
  3. MABTHERA [Concomitant]
     Indication: NON-HODGKIN^S LYMPHOMA
     Dosage: 700 Milligram Daily;
     Route: 042
     Dates: start: 20120123, end: 20120123
  4. ETOPOSIDE TEVA [Concomitant]
     Indication: NON-HODGKIN^S LYMPHOMA
     Dosage: 940 Milligram Daily;
     Route: 042
     Dates: start: 20120127, end: 20120128
  5. ELDISINE [Concomitant]
     Indication: NON-HODGKIN^S LYMPHOMA
     Dosage: 5 Milligram Daily;
     Route: 042
     Dates: start: 20120124, end: 20120124

REACTIONS (1)
  - Mucosal inflammation [Recovered/Resolved]
